FAERS Safety Report 25086073 (Version 1)
Quarter: 2025Q1

REPORT INFORMATION
  Report Type: Spontaneous
  Country: US (occurrence: US)
  Receive Date: 20250317
  Receipt Date: 20250317
  Transmission Date: 20250408
  Serious: No
  Sender: PFIZER
  Company Number: US-PFIZER INC-202500056572

PATIENT
  Sex: Male

DRUGS (2)
  1. CIBINQO [Suspect]
     Active Substance: ABROCITINIB
     Indication: Dermatitis atopic
  2. CIBINQO [Suspect]
     Active Substance: ABROCITINIB
     Indication: Vitiligo

REACTIONS (1)
  - Therapeutic response unexpected [Unknown]
